FAERS Safety Report 8791174 (Version 1)
Quarter: 2012Q4

REPORT INFORMATION
  Report Type: Spontaneous
  Country: US (occurrence: None)
  Receive Date: 20120907
  Receipt Date: 20120907
  Transmission Date: 20130627
  Serious: Yes (Hospitalization)
  Sender: FDA-Public Use
  Company Number: DSA_59292_2012

PATIENT
  Sex: Male

DRUGS (1)
  1. XENAZINE 12.5 MG  (NOT SPECIFIED) [Suspect]
     Indication: HUNTINGTON^S DISEASE
     Route: 048
     Dates: start: 20120816

REACTIONS (1)
  - Platelet count decreased [None]
